FAERS Safety Report 17157524 (Version 1)
Quarter: 2019Q4

REPORT INFORMATION
  Report Type: Spontaneous
  Country: US (occurrence: US)
  Receive Date: 20191121
  Receipt Date: 20191121
  Transmission Date: 20200122
  Serious: Yes (Death)
  Sender: FDA-Public Use
  Company Number: None

PATIENT
  Age: 90 Year

DRUGS (1)
  1. IBRANCE [Suspect]
     Active Substance: PALBOCICLIB
     Indication: BREAST CANCER
     Dosage: ?          QUANTITY:1 DF DOSAGE FORM;?1 BOTTLE ONCE DAILY BY MOUTH
     Route: 048
     Dates: start: 20180216

REACTIONS (1)
  - Death [None]

NARRATIVE: CASE EVENT DATE: 20191118
